FAERS Safety Report 24954739 (Version 1)
Quarter: 2025Q1

REPORT INFORMATION
  Report Type: Spontaneous
  Country: US (occurrence: US)
  Receive Date: 20250211
  Receipt Date: 20250211
  Transmission Date: 20250409
  Serious: No
  Sender: ELI LILLY AND COMPANY
  Company Number: US-ELI_LILLY_AND_COMPANY-US202502004625

PATIENT
  Age: 41 Year
  Sex: Female

DRUGS (1)
  1. VERZENIO [Suspect]
     Active Substance: ABEMACICLIB
     Indication: Breast cancer female
     Dosage: 150 MG, BID
     Route: 048

REACTIONS (9)
  - Nasal congestion [Unknown]
  - Ear infection [Unknown]
  - Sinusitis [Unknown]
  - Pain [Unknown]
  - Pain in extremity [Unknown]
  - Pneumonia [Unknown]
  - Influenza [Unknown]
  - Vomiting [Unknown]
  - Asthenia [Unknown]
